FAERS Safety Report 7343866-8 (Version None)
Quarter: 2011Q1

REPORT INFORMATION
  Report Type: 
  Country: None (occurrence: None)
  Receive Date: 20110310
  Receipt Date: 20110224
  Transmission Date: 20110831
  Serious: Yes (Other)
  Sender: FDA-Public Use
  Company Number: PHHY2011NL15682

PATIENT
  Sex: Male

DRUGS (6)
  1. CYCLOSPORINE [Suspect]
     Route: 064
  2. AMOXICILLIN [Concomitant]
     Dosage: UNK
     Route: 064
  3. METHYLPREDNISOLONE [Suspect]
     Route: 064
  4. COLISTIN SULFATE [Concomitant]
     Route: 064
  5. CLAVULANATE POTASSIUM [Concomitant]
     Route: 064
  6. TOBRAMYCIN [Suspect]
     Dosage: UNK
     Route: 064

REACTIONS (4)
  - PREMATURE BABY [None]
  - SMALL FOR DATES BABY [None]
  - TACHYCARDIA [None]
  - DRUG EXPOSURE DURING PREGNANCY [None]
